FAERS Safety Report 23624434 (Version 2)
Quarter: 2024Q2

REPORT INFORMATION
  Report Type: Report from Study
  Country: US (occurrence: US)
  Receive Date: 20240312
  Receipt Date: 20240408
  Transmission Date: 20240716
  Serious: Yes (Other)
  Sender: FDA-Public Use
  Company Number: US-ABBVIE-5588823

PATIENT
  Age: 64 Year
  Sex: Male

DRUGS (2)
  1. RINVOQ [Suspect]
     Active Substance: UPADACITINIB
     Indication: Colitis ulcerative
     Route: 048
     Dates: start: 20230714
  2. RINVOQ [Suspect]
     Active Substance: UPADACITINIB
     Indication: Colitis ulcerative
     Route: 048
     Dates: start: 20230714

REACTIONS (7)
  - Carotid artery occlusion [Unknown]
  - Fall [Unknown]
  - Influenza [Not Recovered/Not Resolved]
  - Dizziness [Recovered/Resolved]
  - Cardiac disorder [Recovering/Resolving]
  - Concussion [Unknown]
  - Dizziness [Unknown]

NARRATIVE: CASE EVENT DATE: 20230725
